FAERS Safety Report 9096013 (Version 1)
Quarter: 2013Q1

REPORT INFORMATION
  Report Type: Spontaneous
  Country: TW (occurrence: TW)
  Receive Date: 20130207
  Receipt Date: 20130207
  Transmission Date: 20140127
  Serious: Yes (Life-Threatening, Hospitalization)
  Sender: FDA-Public Use
  Company Number: TW-MYLANLABS-2013S1002196

PATIENT
  Age: 76 Year
  Sex: Male
  Weight: 60 kg

DRUGS (9)
  1. DALTEPARIN SODIUM [Suspect]
     Indication: ACUTE MYOCARDIAL INFARCTION
     Dosage: 2500 UNITS EVERY 12H
     Route: 058
  2. TICLOPIDINE [Suspect]
     Indication: ACUTE CORONARY SYNDROME
     Route: 065
  3. CLOPIDOGREL [Suspect]
     Indication: ACUTE CORONARY SYNDROME
     Route: 065
  4. HEPARIN [Concomitant]
     Indication: ACUTE MYOCARDIAL INFARCTION
     Dosage: 3600 UNITS (60 UNIT/KG) LOADING DOSE; THEN CONTINUOUS ADMINISTRATION
     Route: 065
  5. HEPARIN [Concomitant]
     Indication: ACUTE MYOCARDIAL INFARCTION
     Dosage: CONTINUOUS ADMINISTRATION, TARGETED TO APTT OF 50-70S
     Route: 065
  6. NITROGLYCERIN [Concomitant]
     Indication: ACUTE MYOCARDIAL INFARCTION
     Route: 065
  7. BISOPROLOL [Concomitant]
     Route: 065
  8. ISOSORBIDE MONONITRATE [Concomitant]
     Route: 065
  9. AMLODIPINE [Concomitant]
     Route: 065

REACTIONS (4)
  - Retroperitoneal haematoma [Recovered/Resolved]
  - Abdominal compartment syndrome [Recovering/Resolving]
  - Haemothorax [Recovering/Resolving]
  - Nerve compression [Recovered/Resolved]
